FAERS Safety Report 13571396 (Version 1)
Quarter: 2017Q2

REPORT INFORMATION
  Report Type: Report from Study
  Country: None (occurrence: US)
  Receive Date: 20170523
  Receipt Date: 20170523
  Transmission Date: 20170830
  Serious: Yes (Other)
  Sender: FDA-Public Use
  Company Number: US-ABBVIE-17K-163-1980115-00

PATIENT
  Age: 63 Year
  Sex: Male

DRUGS (2)
  1. HUMIRA [Suspect]
     Active Substance: ADALIMUMAB
     Indication: COLITIS ULCERATIVE
     Dosage: DAY 1
     Route: 058
     Dates: start: 20170424, end: 20170424
  2. HUMIRA [Suspect]
     Active Substance: ADALIMUMAB
     Dosage: DAY 15
     Route: 058
     Dates: start: 20170508, end: 20170508

REACTIONS (14)
  - Blood glucose increased [Not Recovered/Not Resolved]
  - Dizziness postural [Unknown]
  - Vertigo [Recovering/Resolving]
  - Rash macular [Unknown]
  - Headache [Not Recovered/Not Resolved]
  - Vertigo [Recovered/Resolved]
  - Rash pruritic [Recovering/Resolving]
  - Injection site pain [Recovered/Resolved]
  - Pyrexia [Recovered/Resolved]
  - Loss of consciousness [Recovered/Resolved]
  - Flushing [Unknown]
  - Rectal haemorrhage [Unknown]
  - Abdominal pain upper [Unknown]
  - Rash papular [Recovering/Resolving]

NARRATIVE: CASE EVENT DATE: 2017
